FAERS Safety Report 10399329 (Version 9)
Quarter: 2014Q4

REPORT INFORMATION
  Report Type: Spontaneous
  Country: US (occurrence: US)
  Receive Date: 20140821
  Receipt Date: 20141125
  Transmission Date: 20150528
  Serious: Yes (Death, Hospitalization)
  Sender: FDA-Public Use
  Company Number: US-ACTELION-A-NJ2014-100877

PATIENT
  Age: 67 Year
  Sex: Female
  Weight: 60.2 kg

DRUGS (17)
  1. WARFARIN [Concomitant]
     Active Substance: WARFARIN
     Dosage: 3 MG, UNK
  2. ADVAIR HFA [Concomitant]
     Active Substance: FLUTICASONE PROPIONATE\SALMETEROL XINAFOATE
     Dosage: 1 PUFF, Q12HRS
  3. DUONEB [Concomitant]
     Active Substance: ALBUTEROL SULFATE\IPRATROPIUM BROMIDE
     Dosage: 3 ML, Q6HRS
  4. NIFEREX [Concomitant]
     Active Substance: IRON\POLYSACCHARIDES
     Dosage: 150 MG, QD
  5. VELETRI [Suspect]
     Active Substance: EPOPROSTENOL
     Indication: PULMONARY HYPERTENSION
     Dosage: 5 NG/KG, PER MIN
     Route: 042
     Dates: start: 20140531
  6. VELETRI [Suspect]
     Active Substance: EPOPROSTENOL
     Dosage: 9 NG/KG, UNK
     Route: 042
     Dates: start: 20140807
  7. COLACE [Concomitant]
     Active Substance: DOCUSATE SODIUM
     Dosage: 100 MG, BID
  8. BUMETANIDE. [Concomitant]
     Active Substance: BUMETANIDE
     Dosage: 1 MG, QD
  9. PRILOSEC [Concomitant]
     Active Substance: OMEPRAZOLE MAGNESIUM
     Dosage: 40 MG, QD
  10. ZOCOR [Concomitant]
     Active Substance: SIMVASTATIN
     Dosage: 20 MG, UNK
  11. OXYGEN. [Concomitant]
     Active Substance: OXYGEN
  12. VELETRI [Suspect]
     Active Substance: EPOPROSTENOL
     Dosage: 7 NG/KG, UNK
     Route: 042
  13. ALPRAZOLAM. [Concomitant]
     Active Substance: ALPRAZOLAM
     Dosage: 0.25 MG, TID
  14. NORCO [Concomitant]
     Active Substance: ACETAMINOPHEN\HYDROCODONE BITARTRATE
     Dosage: 1 5-325MG TAB, Q6HRS
  15. REVATIO [Concomitant]
     Active Substance: SILDENAFIL CITRATE
     Dosage: 20 MG, TID
  16. LETAIRIS [Concomitant]
     Active Substance: AMBRISENTAN
     Dosage: 5 MG, QD
  17. MYCOSTATIN [Concomitant]
     Active Substance: NYSTATIN
     Dosage: UNK, BID
     Route: 061

REACTIONS (31)
  - Abdominal pain [Unknown]
  - Hypokalaemia [Recovered/Resolved]
  - Diarrhoea [Unknown]
  - Yellow skin [Unknown]
  - Abdominal distension [Unknown]
  - Cardiac failure congestive [Unknown]
  - Disease progression [Unknown]
  - Fatigue [Unknown]
  - Eating disorder [Unknown]
  - Hypotension [Unknown]
  - Headache [Unknown]
  - Heart rate increased [Unknown]
  - Dyspnoea [Unknown]
  - Chest pain [Unknown]
  - Palpitations [Unknown]
  - Vomiting [Unknown]
  - Pain in extremity [Unknown]
  - Nausea [Unknown]
  - Pulmonary hypertension [Unknown]
  - Oedema peripheral [Unknown]
  - Death [Fatal]
  - Gastrointestinal disorder [Unknown]
  - Oedema [Unknown]
  - Asthenia [Unknown]
  - Oedema peripheral [Unknown]
  - Thrombocytopenia [Unknown]
  - Anaemia [Not Recovered/Not Resolved]
  - Hypoxia [Unknown]
  - Respiratory failure [Unknown]
  - Cough [Unknown]
  - Tachycardia [Unknown]

NARRATIVE: CASE EVENT DATE: 20140809
